FAERS Safety Report 7619303-2 (Version None)
Quarter: 2011Q3

REPORT INFORMATION
  Report Type: 
  Country: None (occurrence: None)
  Receive Date: 20110718
  Receipt Date: 20110715
  Transmission Date: 20111222
  Serious: No
  Sender: FDA-Public Use
  Company Number: US-B.I. PHARMACEUTICALS,INC./RIDGEFIELD-2011-BP-15898BP

PATIENT
  Sex: Female

DRUGS (7)
  1. POTASSIUM [Concomitant]
     Indication: FLUID RETENTION
     Dosage: 30 MEQ
     Route: 048
     Dates: start: 20010101
  2. PRADAXA [Suspect]
     Indication: ATRIAL FIBRILLATION
     Dosage: 300 MG
     Route: 048
     Dates: start: 20110223, end: 20110418
  3. EYE DROPS [Concomitant]
  4. COUMADIN [Concomitant]
     Indication: ATRIAL FIBRILLATION
     Dosage: 2 MG
     Route: 048
     Dates: start: 20110419
  5. VERAPAMIL [Concomitant]
     Indication: HYPERTENSION
     Dosage: 160 MG
     Route: 048
     Dates: start: 20020101
  6. DIOVAN [Concomitant]
     Indication: HYPERTENSION
     Dosage: 240 MG
     Route: 048
     Dates: start: 20010101
  7. LASIX [Concomitant]
     Indication: FLUID RETENTION
     Dosage: 80 MG
     Route: 048
     Dates: start: 20010101

REACTIONS (2)
  - RECTAL HAEMORRHAGE [None]
  - HEADACHE [None]
